FAERS Safety Report 8909049 (Version 2)
Quarter: 2012Q4

REPORT INFORMATION
  Report Type: 
  Country: CH (occurrence: CH)
  Receive Date: 20121114
  Receipt Date: 20121219
  Transmission Date: 20130627
  Serious: Yes (Hospitalization)
  Sender: FDA-Public Use
  Company Number: PHHY2012CH104705

PATIENT
  Age: 34 Year
  Sex: Female

DRUGS (6)
  1. ENTUMIN [Suspect]
     Indication: BIPOLAR DISORDER
     Dosage: 40 mg, daily
     Route: 048
     Dates: start: 2007, end: 20090908
  2. ENTUMIN [Suspect]
     Dosage: 100 DF, of 40 mg (4g) at once
     Route: 048
     Dates: start: 20090508
  3. RITALIN [Suspect]
     Indication: ABNORMAL BEHAVIOUR
     Dosage: 160 mg, daily
     Route: 042
     Dates: end: 20090908
  4. RITALIN LA [Suspect]
  5. METHADONE [Suspect]
     Indication: ABNORMAL BEHAVIOUR
     Dosage: 5 mg, QD
     Route: 048
     Dates: start: 2005
  6. ALCOHOL [Concomitant]
     Dosage: (2-3 bottles of beer).
     Route: 048

REACTIONS (6)
  - Suicide attempt [Recovered/Resolved]
  - Blood alcohol increased [Unknown]
  - Depressed level of consciousness [Recovered/Resolved]
  - Drug abuse [Unknown]
  - Intentional overdose [Unknown]
  - Incorrect route of drug administration [Unknown]
